FAERS Safety Report 12101740 (Version 3)
Quarter: 2016Q2

REPORT INFORMATION
  Report Type: Report from Study
  Country: DE (occurrence: DE)
  Receive Date: 20160222
  Receipt Date: 20160427
  Transmission Date: 20160815
  Serious: Yes (Hospitalization, Other)
  Sender: FDA-Public Use
  Company Number: DE-PFIZER INC-2010121347

PATIENT
  Age: 27 Year
  Sex: Male
  Weight: 87 kg

DRUGS (8)
  1. TILIDINE [Concomitant]
     Active Substance: TILIDINE
     Indication: HEADACHE
     Dosage: UNK
     Route: 048
     Dates: start: 20081201, end: 2013
  2. SOMAVERT [Suspect]
     Active Substance: PEGVISOMANT
     Dosage: 160 MG, WEEKLY
     Dates: start: 201102
  3. SOMAVERT [Suspect]
     Active Substance: PEGVISOMANT
     Indication: ACROMEGALY
     Dosage: 160 MG, WEEKLY
     Dates: start: 20081201, end: 201102
  4. OCTREOTIDE LAR [Concomitant]
     Active Substance: OCTREOTIDE
     Dosage: UNK
     Dates: start: 20081201
  5. NOVAMINSULFON [Concomitant]
     Active Substance: METAMIZOLE
     Dosage: UNK
     Route: 048
     Dates: start: 200902
  6. OCTREOTIDE SHORT ACTING [Concomitant]
     Dosage: UNK
     Dates: start: 20070802, end: 20071105
  7. GABAPENTIN. [Concomitant]
     Active Substance: GABAPENTIN
     Dosage: UNK
     Route: 048
     Dates: start: 200905, end: 201409
  8. OCTREOTIDE SHORT ACTING [Concomitant]
     Dosage: UNK
     Dates: start: 20081201

REACTIONS (1)
  - Pituitary tumour benign [Recovered/Resolved]

NARRATIVE: CASE EVENT DATE: 20100921
